FAERS Safety Report 12612465 (Version 1)
Quarter: 2016Q3

REPORT INFORMATION
  Report Type: Spontaneous
  Country: US (occurrence: US)
  Receive Date: 20160801
  Receipt Date: 20160801
  Transmission Date: 20161109
  Serious: No
  Sender: FDA-Public Use
  Company Number: US-PERRIGO-15US007452

PATIENT
  Age: 57 Year
  Sex: Female
  Weight: 52.15 kg

DRUGS (1)
  1. CLOBETASOL PROPIONATE. [Suspect]
     Active Substance: CLOBETASOL PROPIONATE
     Indication: ACCIDENTAL EXPOSURE TO PRODUCT
     Dosage: SMALL AMOUNT, SINGLE
     Route: 047
     Dates: start: 20150717, end: 20150717

REACTIONS (2)
  - Accidental exposure to product [Recovered/Resolved]
  - Vision blurred [Recovered/Resolved]

NARRATIVE: CASE EVENT DATE: 20150717
